FAERS Safety Report 4992243-3 (Version None)
Quarter: 2006Q2

REPORT INFORMATION
  Report Type: 
  Country: None (occurrence: None)
  Receive Date: 20060502
  Receipt Date: 20060419
  Transmission Date: 20061013
  Serious: No
  Sender: FDA-Public Use
  Company Number: PAR_0609_2006

PATIENT
  Age: 80 Year
  Sex: Female
  Weight: 79.8331 kg

DRUGS (8)
  1. HYDROXYUREA [Suspect]
     Indication: THROMBOCYTHAEMIA
     Dosage: 4000 MG QDAY PO
     Route: 048
     Dates: start: 20040410, end: 20040414
  2. LASIX [Concomitant]
  3. ALLOPURINOL [Concomitant]
  4. TOPROL-XL [Concomitant]
  5. DILTIAZEM [Concomitant]
  6. SYNTHROID [Concomitant]
  7. COUMADIN [Concomitant]
  8. ASPIRIN [Concomitant]

REACTIONS (2)
  - BONE MARROW FAILURE [None]
  - PETECHIAE [None]
